FAERS Safety Report 25248844 (Version 1)
Quarter: 2025Q2

REPORT INFORMATION
  Report Type: Spontaneous
  Country: US (occurrence: US)
  Receive Date: 20250429
  Receipt Date: 20250429
  Transmission Date: 20250716
  Serious: Yes (Other)
  Sender: COOPERSURGICAL
  Company Number: US-COOPERSURGICAL, INC.-2025CPS003366

PATIENT
  Age: 24 Year
  Sex: Female
  Weight: 52.154 kg

DRUGS (1)
  1. PARAGARD T 380A [Suspect]
     Active Substance: COPPER
     Indication: Contraception
     Route: 015
     Dates: start: 20110601, end: 20120808

REACTIONS (1)
  - Uterine leiomyoma [Unknown]

NARRATIVE: CASE EVENT DATE: 20120101
